FAERS Safety Report 7598679-9 (Version None)
Quarter: 2011Q3

REPORT INFORMATION
  Report Type: 
  Country: None (occurrence: None)
  Receive Date: 20110711
  Receipt Date: 20110701
  Transmission Date: 20111222
  Serious: Yes (Hospitalization)
  Sender: FDA-Public Use
  Company Number: US-BIOGENIDEC-2006BI018893

PATIENT
  Sex: Female

DRUGS (2)
  1. AVONEX [Suspect]
     Route: 030
     Dates: start: 20030101
  2. AVONEX [Suspect]
     Indication: MULTIPLE SCLEROSIS
     Route: 030
     Dates: start: 19970101, end: 20030101

REACTIONS (14)
  - UTERINE HAEMORRHAGE [None]
  - BACTERAEMIA [None]
  - THROMBOTIC THROMBOCYTOPENIC PURPURA [None]
  - UTERINE DISORDER [None]
  - HYPOAESTHESIA [None]
  - NERVOUS SYSTEM DISORDER [None]
  - CORONARY ARTERY THROMBOSIS [None]
  - CEREBROVASCULAR ACCIDENT [None]
  - SYNCOPE [None]
  - MULTIPLE SCLEROSIS RELAPSE [None]
  - INTERVERTEBRAL DISC PROTRUSION [None]
  - MEDICAL DEVICE COMPLICATION [None]
  - CARDIAC NEOPLASM UNSPECIFIED [None]
  - INTERVERTEBRAL DISC COMPRESSION [None]
